FAERS Safety Report 18876160 (Version 1)
Quarter: 2021Q1

REPORT INFORMATION
  Report Type: Report from Study
  Country: None (occurrence: US)
  Receive Date: 20210211
  Receipt Date: 20210211
  Transmission Date: 20210420
  Serious: Yes (Other)
  Sender: FDA-Public Use
  Company Number: US-ABBVIE-21K-163-3766268-00

PATIENT
  Sex: Female

DRUGS (1)
  1. HUMIRA [Suspect]
     Active Substance: ADALIMUMAB
     Indication: PRODUCT USED FOR UNKNOWN INDICATION
     Dosage: CF
     Route: 058

REACTIONS (5)
  - Granuloma [Unknown]
  - Ingrowing nail [Unknown]
  - Dysbiosis [Not Recovered/Not Resolved]
  - Localised infection [Not Recovered/Not Resolved]
  - Post procedural complication [Unknown]
